FAERS Safety Report 9986063 (Version 2)
Quarter: 2014Q1

REPORT INFORMATION
  Report Type: Spontaneous
  Country: US (occurrence: US)
  Receive Date: 20140307
  Receipt Date: 20140321
  Transmission Date: 20141002
  Serious: Yes (Other)
  Sender: FDA-Public Use
  Company Number: US-009507513-1403USA000544

PATIENT
  Sex: Female

DRUGS (6)
  1. HYZAAR [Suspect]
     Indication: HYPERTENSION
     Dosage: 50/12.5 MG
     Route: 048
     Dates: start: 1999
  2. HYZAAR [Suspect]
     Indication: HYPERTENSION
     Dosage: 100/12.5 MG
     Route: 048
     Dates: start: 2013
  3. HYDROCHLOROTHIAZIDE (+) LOSARTAN POTASSIUM [Suspect]
  4. ASPIRIN [Concomitant]
  5. ADVAIR [Concomitant]
  6. VENTOLIN (ALBUTEROL SULFATE) [Concomitant]

REACTIONS (6)
  - Lacunar infarction [Unknown]
  - Dyspnoea [Not Recovered/Not Resolved]
  - Asthenia [Not Recovered/Not Resolved]
  - Pruritus [Not Recovered/Not Resolved]
  - Wrong technique in drug usage process [Unknown]
  - Underdose [Unknown]
